FAERS Safety Report 14332865 (Version 3)
Quarter: 2022Q1

REPORT INFORMATION
  Report Type: Spontaneous
  Country: PT (occurrence: PT)
  Receive Date: 20171228
  Receipt Date: 20220324
  Transmission Date: 20220423
  Serious: Yes (Hospitalization)
  Sender: FDA-Public Use
  Company Number: PT-AUROBINDO-AUR-APL-2017-47471

PATIENT
  Age: 58 Year
  Sex: Female
  Weight: 55 kg

DRUGS (8)
  1. VALPROIC ACID [Interacting]
     Active Substance: VALPROIC ACID
     Indication: Affective disorder
     Dosage: 300 MILLIGRAM, ONCE A DAY
     Route: 048
     Dates: start: 20150510
  2. VALPROIC ACID [Interacting]
     Active Substance: VALPROIC ACID
     Dosage: 500 MILLIGRAM, ONCE A DAY
     Route: 048
     Dates: start: 20150515
  3. ABILIFY [Interacting]
     Active Substance: ARIPIPRAZOLE
     Indication: Psychotic disorder
     Dosage: UNK ()
     Route: 048
  4. ABILIFY MAINTENA [Interacting]
     Active Substance: ARIPIPRAZOLE
     Indication: Psychotic disorder
     Dosage: 400 MILLIGRAM
     Route: 030
     Dates: start: 20150504
  5. QUETIAPINE [Concomitant]
     Active Substance: QUETIAPINE
     Indication: Product used for unknown indication
     Dosage: 200 MG, ON DEMAND
     Route: 048
  6. OLANZAPINE [Concomitant]
     Active Substance: OLANZAPINE
     Indication: Affective disorder
     Dosage: 20 MILLIGRAM, ONCE A DAY
     Route: 048
     Dates: start: 20150504
  7. TETRABENAZINE [Concomitant]
     Active Substance: TETRABENAZINE
     Indication: Product used for unknown indication
     Dosage: 50 MILLIGRAM, TWO TIMES A DAY
     Route: 048
  8. TETRABENAZINE [Concomitant]
     Active Substance: TETRABENAZINE
     Dosage: UNK, ONCE A DAY
     Route: 065

REACTIONS (4)
  - Affective disorder [Recovered/Resolved]
  - Behaviour disorder [Recovered/Resolved]
  - Drug interaction [Unknown]
  - Off label use [Unknown]

NARRATIVE: CASE EVENT DATE: 20150518
